FAERS Safety Report 19780236 (Version 1)
Quarter: 2021Q3

REPORT INFORMATION
  Report Type: Spontaneous
  Country: GB (occurrence: GB)
  Receive Date: 20210902
  Receipt Date: 20210902
  Transmission Date: 20211014
  Serious: Yes (Disabling)
  Sender: FDA-Public Use
  Company Number: GB-PFIZER INC-202101101807

PATIENT
  Age: 85 Year
  Sex: Male
  Weight: 92 kg

DRUGS (23)
  1. MEROPENEM. [Suspect]
     Active Substance: MEROPENEM
     Dosage: 500 MG
     Dates: start: 20210726
  2. AZITHROMYCIN ANHYDROUS. [Concomitant]
     Active Substance: AZITHROMYCIN ANHYDROUS
     Dosage: 1 UNK, 1X/DAY
     Dates: start: 20210603, end: 20210606
  3. BISOPROLOL [Concomitant]
     Active Substance: BISOPROLOL
     Dosage: 1 UNK, 1X/DAY
     Dates: start: 20210418
  4. DIPROBASE [PARAFFIN, LIQUID;WHITE SOFT PARAFFIN] [Concomitant]
     Dosage: UNK
     Dates: start: 20210731, end: 20210810
  5. HYDROXOCOBALAMIN [Concomitant]
     Active Substance: HYDROXOCOBALAMIN
     Dosage: 1 UNK, EVERY 3 MONTHS
     Route: 030
     Dates: start: 20210504
  6. LAMOTRIGINE. [Concomitant]
     Active Substance: LAMOTRIGINE
     Dosage: 1 UNK, 2X/DAY
     Dates: start: 20210429
  7. PARACETAMOL [Concomitant]
     Active Substance: ACETAMINOPHEN
     Dosage: 2 UNK, 4X/DAY
     Dates: start: 20210608, end: 20210612
  8. BUMETANIDE. [Concomitant]
     Active Substance: BUMETANIDE
     Dosage: 1 UNK, 2X/DAY
     Dates: start: 20210726
  9. CITALOPRAM [Concomitant]
     Active Substance: CITALOPRAM HYDROBROMIDE
     Dosage: 1 UNK, 1X/DAY
     Dates: start: 20210429
  10. METFORMIN [Concomitant]
     Active Substance: METFORMIN HYDROCHLORIDE
     Dosage: 4 UNK, 1X/DAYJUST AFTER EVENING MEAL.
     Dates: start: 20210429, end: 20210722
  11. VENTOLINE [SALBUTAMOL SULFATE] [Concomitant]
     Active Substance: ALBUTEROL SULFATE
     Dosage: 2 UNK, 4X/DAY PUFFS. USE WHEN REQUIRED
     Route: 055
     Dates: start: 20210312
  12. ACCRETE D3 [Concomitant]
     Active Substance: CALCIUM CARBONATE\CHOLECALCIFEROL
     Dosage: 1 UNK, 2X/DAY
     Dates: start: 20210722
  13. LINAGLIPTIN [Concomitant]
     Active Substance: LINAGLIPTIN
     Dosage: 1 UNK, 1X/DAY
     Dates: start: 20210722
  14. SPIRONOLACTONE. [Concomitant]
     Active Substance: SPIRONOLACTONE
     Dosage: 0.5 UNK, 1X/DAY
     Dates: start: 20210429
  15. ATORVASTATIN [Concomitant]
     Active Substance: ATORVASTATIN
     Dosage: 1 UNK, 1X/DAY AT NIGHT.
     Dates: start: 20210429
  16. FUROSEMIDE. [Concomitant]
     Active Substance: FUROSEMIDE
     Dosage: 1 UNK, 1X/DAY
     Dates: start: 20210428, end: 20210812
  17. LOSARTAN. [Concomitant]
     Active Substance: LOSARTAN
     Dosage: 1 UNK, 1X/DAY
     Dates: start: 20210429
  18. CETRABEN [LIGHT LIQUID PARAFFIN;WHITE SOFT PARAFFIN] [Concomitant]
     Dosage: USE AS DIRECTED.
     Dates: start: 20210731
  19. LEVETIRACETAM. [Concomitant]
     Active Substance: LEVETIRACETAM
     Dosage: 3 UNK, 2X/DAY
     Dates: start: 20210429
  20. NEBIDO [Concomitant]
     Active Substance: TESTOSTERONE UNDECANOATE
     Dosage: UNK
     Dates: start: 20210519
  21. APIXABAN [Concomitant]
     Active Substance: APIXABAN
     Dosage: 1 UNK, 2X/DAY
     Dates: start: 20210429
  22. EUMOVATE [Concomitant]
     Active Substance: CLOBETASONE BUTYRATE
     Dosage: 1 UNK, 2X/DAY
     Dates: start: 20210731, end: 20210807
  23. FOLIC ACID. [Concomitant]
     Active Substance: FOLIC ACID
     Dosage: 1 UNK, 1X/DAY
     Dates: start: 20210603, end: 20210729

REACTIONS (1)
  - Rash macular [Recovered/Resolved]

NARRATIVE: CASE EVENT DATE: 20210726
